FAERS Safety Report 7135474-9 (Version None)
Quarter: 2010Q4

REPORT INFORMATION
  Report Type: 
  Country: None (occurrence: None)
  Receive Date: 20101203
  Receipt Date: 20101124
  Transmission Date: 20110411
  Serious: Yes (Hospitalization)
  Sender: FDA-Public Use
  Company Number: FR-CEPHALON-2010006262

PATIENT
  Sex: Male

DRUGS (1)
  1. TREANDA [Suspect]
     Indication: HODGKIN'S DISEASE
     Route: 041
     Dates: start: 20091229, end: 20100127

REACTIONS (3)
  - GENERAL PHYSICAL HEALTH DETERIORATION [None]
  - HYPERCALCAEMIA [None]
  - PYREXIA [None]
